FAERS Safety Report 19332921 (Version 1)
Quarter: 2021Q2

REPORT INFORMATION
  Report Type: Report from Study
  Country: MX (occurrence: MX)
  Receive Date: 20210529
  Receipt Date: 20210529
  Transmission Date: 20210717
  Serious: Yes (Other)
  Sender: FDA-Public Use
  Company Number: NVSC2021MX119219

PATIENT
  Sex: Female
  Weight: 79 kg

DRUGS (2)
  1. EXFORGE HCT [Suspect]
     Active Substance: AMLODIPINE BESYLATE\HYDROCHLOROTHIAZIDE\VALSARTAN
     Dosage: 0.5 DF, QD (10/320/25 MG)
     Route: 048
  2. EXFORGE HCT [Suspect]
     Active Substance: AMLODIPINE BESYLATE\HYDROCHLOROTHIAZIDE\VALSARTAN
     Indication: CARDIAC DISORDER
     Dosage: 1 DF, QD, (5/160/12.5 MG)
     Route: 048
     Dates: start: 2017

REACTIONS (12)
  - Oropharyngeal pain [Unknown]
  - Malaise [Unknown]
  - Wrong technique in product usage process [Unknown]
  - Product use in unapproved indication [Unknown]
  - Diabetes mellitus [Not Recovered/Not Resolved]
  - Fear [Unknown]
  - Hordeolum [Recovered/Resolved]
  - Cough [Unknown]
  - Reflux laryngitis [Not Recovered/Not Resolved]
  - Limb discomfort [Recovered/Resolved]
  - Toxicity to various agents [Recovered/Resolved]
  - Abdominal pain upper [Unknown]

NARRATIVE: CASE EVENT DATE: 2017
